FAERS Safety Report 9298330 (Version 4)
Quarter: 2013Q2

REPORT INFORMATION
  Report Type: Report from Study
  Country: NO (occurrence: NO)
  Receive Date: 20130520
  Receipt Date: 20130614
  Transmission Date: 20140414
  Serious: Yes (Hospitalization, Other)
  Sender: FDA-Public Use
  Company Number: PHHY2013NO048673

PATIENT
  Age: 62 Year
  Sex: Female

DRUGS (6)
  1. AFINITOR [Suspect]
     Dosage: 10 MG, QD
     Route: 048
     Dates: start: 20130213, end: 20130409
  2. KLACID [Concomitant]
     Indication: UPPER RESPIRATORY TRACT INFECTION
     Dosage: 500 MG, QD
     Route: 048
     Dates: start: 20130405
  3. ZOMETA [Concomitant]
     Indication: METASTASIS
     Dosage: 4 MG, QMO
     Route: 042
     Dates: start: 20120419, end: 20130408
  4. AMPICILINA [Concomitant]
     Indication: URINARY TRACT INFECTION
     Dosage: 1500 MG, TID
     Route: 048
     Dates: start: 20120415
  5. CALCIUM [Concomitant]
  6. VITAMIN D3 [Concomitant]

REACTIONS (10)
  - General physical health deterioration [Unknown]
  - Upper respiratory tract infection [Recovered/Resolved]
  - Renal failure [Unknown]
  - Urinary tract infection [Recovered/Resolved]
  - Glomerular filtration rate decreased [Unknown]
  - Blood creatinine increased [Recovering/Resolving]
  - Urine output decreased [Unknown]
  - Hypertriglyceridaemia [Recovered/Resolved]
  - Hypokalaemia [Unknown]
  - Lethargy [Unknown]
